FAERS Safety Report 6207949-8 (Version None)
Quarter: 2009Q2

REPORT INFORMATION
  Report Type: 
  Country: None (occurrence: None)
  Receive Date: 20090529
  Receipt Date: 20081009
  Transmission Date: 20091009
  Serious: No
  Sender: FDA-Public Use
  Company Number: A0751340A

PATIENT
  Age: 70 Year
  Sex: Female

DRUGS (4)
  1. VENTOLIN [Suspect]
     Dosage: 2PUFF FOUR TIMES PER DAY
     Route: 055
  2. SPIRIVA [Concomitant]
  3. VITAMINS [Concomitant]
  4. VINEGAR [Concomitant]

REACTIONS (1)
  - DIZZINESS [None]
